FAERS Safety Report 17417582 (Version 2)
Quarter: 2020Q1

REPORT INFORMATION
  Report Type: Spontaneous
  Country: HR (occurrence: HR)
  Receive Date: 20200213
  Receipt Date: 20200221
  Transmission Date: 20200409
  Serious: Yes (Other)
  Sender: FDA-Public Use
  Company Number: HR-US-PROVELL PHARMACEUTICALS LLC-E2B_90074869

PATIENT
  Age: 51 Year
  Sex: Female
  Weight: 55 kg

DRUGS (1)
  1. EUTHYROX [Suspect]
     Active Substance: LEVOTHYROXINE SODIUM
     Indication: PRODUCT USED FOR UNKNOWN INDICATION
     Dosage: IN THE MORNING ON AN EMPTY STOMACH
     Route: 048

REACTIONS (5)
  - Malaise [Unknown]
  - Headache [Unknown]
  - Nausea [Unknown]
  - Choking [Unknown]
  - Diarrhoea [Unknown]

NARRATIVE: CASE EVENT DATE: 20191201
